FAERS Safety Report 21773027 (Version 1)
Quarter: 2022Q4

REPORT INFORMATION
  Report Type: Spontaneous
  Country: US (occurrence: US)
  Receive Date: 20221223
  Receipt Date: 20221223
  Transmission Date: 20230113
  Serious: No
  Sender: FDA-Public Use
  Company Number: US-AMRING PHARMACEUTICALS INC.-2022US004401

PATIENT
  Age: 63 Year
  Sex: Male

DRUGS (3)
  1. TIMOLOL MALEATE [Suspect]
     Active Substance: TIMOLOL MALEATE
     Indication: Open angle glaucoma
     Dosage: 1 GTT, BID (ONE DROP IN EACH EYE)
     Route: 047
     Dates: start: 202208
  2. ZIOPTAN [Concomitant]
     Active Substance: TAFLUPROST
     Indication: Product used for unknown indication
     Dosage: 1 GTT, IN EACH EYE AT BEDTIME
     Route: 047
  3. ACETAZOLAMIDE [Concomitant]
     Active Substance: ACETAZOLAMIDE
     Indication: Product used for unknown indication
     Dosage: UNK, BID
     Route: 065

REACTIONS (3)
  - Intraocular pressure increased [Recovered/Resolved]
  - Drug ineffective [Recovered/Resolved]
  - Product storage error [Recovered/Resolved]

NARRATIVE: CASE EVENT DATE: 20220801
